FAERS Safety Report 7291235-1 (Version None)
Quarter: 2011Q1

REPORT INFORMATION
  Report Type: 
  Country: None (occurrence: None)
  Receive Date: 20110214
  Receipt Date: 20110205
  Transmission Date: 20110831
  Serious: Yes (Death, Life-Threatening, Hospitalization, Other)
  Sender: FDA-Public Use
  Company Number: US-SANOFI-AVENTIS-2009SA000785

PATIENT
  Age: 75 Year
  Sex: Male
  Weight: 68 kg

DRUGS (26)
  1. AFLIBERCEPT [Suspect]
     Indication: PROSTATE CANCER METASTATIC
     Route: 042
     Dates: start: 20091104, end: 20091104
  2. DOCETAXEL [Suspect]
     Route: 042
     Dates: start: 20090722, end: 20090722
  3. CALCIUM [Concomitant]
  4. NITRGLYCERIN TRANSDERMAL SYSTEM [Concomitant]
     Dosage: 0.1 MG/HR
  5. COLACE [Concomitant]
     Dates: start: 20090717
  6. CALCIUM PHOSPHATE [Concomitant]
     Dates: start: 20091023
  7. LIPITOR [Concomitant]
  8. DARVOCET-N 100 [Concomitant]
     Route: 048
  9. ALOXI [Concomitant]
     Dates: start: 20090722, end: 20091104
  10. NEULASTA [Concomitant]
     Dates: start: 20090813, end: 20091016
  11. REMERON [Concomitant]
     Dates: start: 20090822
  12. DOCETAXEL [Suspect]
     Indication: PROSTATE CANCER METASTATIC
     Route: 042
     Dates: start: 20091104, end: 20091104
  13. AFLIBERCEPT [Suspect]
     Route: 042
     Dates: start: 20090722, end: 20090722
  14. HYTRIN [Concomitant]
  15. VITAMIN D [Concomitant]
  16. FLEET ENEMA /CAN/ [Concomitant]
     Dates: start: 20090717
  17. PEPCID [Concomitant]
     Dates: start: 20090722, end: 20091104
  18. ZOLADEX [Concomitant]
     Dates: start: 20020601
  19. LEVAQUIN [Concomitant]
  20. BENADRYL [Concomitant]
     Dates: start: 20090722, end: 20091104
  21. IMODIUM [Concomitant]
     Dates: start: 20091101
  22. PREDNISONE [Suspect]
     Indication: PROSTATE CANCER METASTATIC
     Route: 048
     Dates: start: 20090722, end: 20091106
  23. TOPROL-XL [Concomitant]
  24. XANAX [Concomitant]
     Route: 048
  25. LACTULOSE [Concomitant]
     Dates: start: 20090715
  26. ALL OTHER THERAPEUTIC PRODUCTS [Concomitant]
     Dates: start: 20091023

REACTIONS (5)
  - HYPOTENSION [None]
  - VENTRICULAR EXTRASYSTOLES [None]
  - MYOCARDIAL INFARCTION [None]
  - SINUS TACHYCARDIA [None]
  - DEATH [None]
